FAERS Safety Report 4651227-5 (Version None)
Quarter: 2005Q2

REPORT INFORMATION
  Report Type: 
  Country: None (occurrence: None)
  Receive Date: 20050503
  Receipt Date: 20050427
  Transmission Date: 20051028
  Serious: Yes (Other)
  Sender: FDA-Public Use
  Company Number: PHEH2005US04882

PATIENT
  Sex: Male
  Weight: 96 kg

DRUGS (5)
  1. GLUCOPHAGE [Concomitant]
     Dosage: 1 G, BID
  2. NORVASC [Concomitant]
     Dosage: 5 MG, QD
  3. MAXZIDE [Concomitant]
     Dosage: 1/2 QD
  4. MONOPRIL [Concomitant]
     Dosage: 40 MG, QD
  5. ZOMETA [Suspect]
     Indication: METASTASES TO BONE
     Dosage: 4 MG EVERY MONTH
     Dates: start: 20030101, end: 20050101

REACTIONS (1)
  - ASEPTIC NECROSIS BONE [None]
